FAERS Safety Report 9478386 (Version 2)
Quarter: 2013Q3

REPORT INFORMATION
  Report Type: Spontaneous
  Country: US (occurrence: US)
  Receive Date: 20130827
  Receipt Date: 20130827
  Transmission Date: 20140515
  Serious: Yes (Death, Hospitalization)
  Sender: FDA-Public Use
  Company Number: US-ASTELLAS-2013US007944

PATIENT
  Age: 68 Year
  Sex: Female

DRUGS (1)
  1. PROGRAF [Suspect]
     Indication: LUNG TRANSPLANT
     Dosage: 3 MG, BID
     Route: 048
     Dates: start: 20120430, end: 20130817

REACTIONS (3)
  - Off label use [Unknown]
  - Death [Fatal]
  - Pneumonia [Unknown]
